FAERS Safety Report 13490859 (Version 1)
Quarter: 2017Q2

REPORT INFORMATION
  Report Type: Spontaneous
  Country: US (occurrence: US)
  Receive Date: 20170427
  Receipt Date: 20170427
  Transmission Date: 20170830
  Serious: Yes (Disabling)
  Sender: FDA-Public Use
  Company Number: None

PATIENT
  Age: 65 Year
  Sex: Female
  Weight: 81 kg

DRUGS (6)
  1. CREST 3D WHITE [Suspect]
     Active Substance: SODIUM FLUORIDE
     Indication: DENTAL CLEANING
     Dosage: BRUSH TEETH/TONGUE?
     Dates: start: 20161124, end: 20170113
  2. ZOCOR [Concomitant]
     Active Substance: SIMVASTATIN
  3. ASPIRIN. [Concomitant]
     Active Substance: ASPIRIN
  4. WOMEN^S DAILY MULTIVITAMIN [Concomitant]
  5. ZIAC [Concomitant]
     Active Substance: BISOPROLOL FUMARATE\HYDROCHLOROTHIAZIDE
  6. LYSINE [Concomitant]
     Active Substance: LYSINE

REACTIONS (4)
  - Frustration tolerance decreased [None]
  - Burning mouth syndrome [None]
  - Depression [None]
  - Emotional distress [None]

NARRATIVE: CASE EVENT DATE: 20161124
